FAERS Safety Report 8619355-7 (Version None)
Quarter: 2012Q3

REPORT INFORMATION
  Report Type: 
  Country: None (occurrence: None)
  Receive Date: 20120824
  Receipt Date: 20120815
  Transmission Date: 20120928
  Serious: Yes (Hospitalization, Disabling, Other)
  Sender: FDA-Public Use
  Company Number: US-009507513-1206USA04946

PATIENT

DRUGS (1)
  1. FOSAMAX [Suspect]
     Indication: OSTEOPOROSIS
     Dosage: 70 MG, UNK
     Route: 048
     Dates: start: 20030101, end: 20090101

REACTIONS (13)
  - LOW TURNOVER OSTEOPATHY [None]
  - SURGERY [None]
  - BLOOD CHOLESTEROL INCREASED [None]
  - CONSTIPATION [None]
  - HYPOTHYROIDISM [None]
  - MULTIPLE FRACTURES [None]
  - BLOOD POTASSIUM DECREASED [None]
  - GASTROOESOPHAGEAL REFLUX DISEASE [None]
  - FEMUR FRACTURE [None]
  - OPEN REDUCTION OF FRACTURE [None]
  - ARTHRALGIA [None]
  - OSTEOPOROSIS [None]
  - BACK PAIN [None]
